FAERS Safety Report 5445019-7 (Version None)
Quarter: 2007Q3

REPORT INFORMATION
  Report Type: 
  Country: None (occurrence: None)
  Receive Date: 20070906
  Receipt Date: 20070823
  Transmission Date: 20080115
  Serious: Yes (Other)
  Sender: FDA-Public Use
  Company Number: NL-ELI_LILLY_AND_COMPANY-NL200706003158

PATIENT
  Age: 17 Year
  Sex: Male

DRUGS (14)
  1. ZYPREXA [Suspect]
     Indication: SCHIZOPHRENIA
     Dosage: 12.5 MG, UNK
     Dates: start: 20070402, end: 20070417
  2. ZYPREXA [Suspect]
     Dosage: 7.5 MG, UNK
     Dates: start: 20070418, end: 20070423
  3. ZYPREXA [Suspect]
     Dosage: 5 MG, UNK
     Dates: start: 20070424, end: 20070426
  4. ZYPREXA [Suspect]
     Dosage: 10 MG, UNK
     Dates: start: 20061006, end: 20070401
  5. OXAZEPAM [Concomitant]
     Dosage: 10 MG, 2/D
     Dates: start: 20070322, end: 20070417
  6. OXAZEPAM [Concomitant]
     Dosage: 20 MG, 2/D AS NEEDED
     Dates: start: 20070418
  7. QUETIAPINE FUMARATE [Concomitant]
     Dosage: 25 MG, UNK
     Dates: start: 20070514, end: 20070514
  8. QUETIAPINE FUMARATE [Concomitant]
     Dosage: 50 MG, UNK
     Dates: start: 20070515, end: 20070515
  9. QUETIAPINE FUMARATE [Concomitant]
     Dosage: 100 MG, UNK
     Dates: start: 20070516, end: 20070516
  10. QUETIAPINE FUMARATE [Concomitant]
     Dosage: 200 MG, UNK
     Dates: start: 20070517, end: 20070517
  11. QUETIAPINE FUMARATE [Concomitant]
     Dosage: 300 MG, UNK
     Dates: start: 20070518, end: 20070620
  12. QUETIAPINE FUMARATE [Concomitant]
     Dosage: 200 MG, UNK
     Dates: start: 20070621, end: 20070621
  13. QUETIAPINE FUMARATE [Concomitant]
     Dosage: 100 MG, UNK
     Dates: start: 20070622, end: 20070623
  14. QUETIAPINE FUMARATE [Concomitant]
     Dosage: 50 MG, UNK
     Dates: start: 20070624, end: 20070624

REACTIONS (1)
  - AGRANULOCYTOSIS [None]
